FAERS Safety Report 5308542-1 (Version None)
Quarter: 2007Q2

REPORT INFORMATION
  Report Type: 
  Country: None (occurrence: None)
  Receive Date: 20070420
  Receipt Date: 20070412
  Transmission Date: 20071010
  Serious: Yes (Congenital Anomaly)
  Sender: FDA-Public Use
  Company Number: 2007S1000106

PATIENT
  Sex: Male
  Weight: 3.8556 kg

DRUGS (2)
  1. SORIATANE [Suspect]
     Dosage: TRPL
     Route: 064
     Dates: start: 19950101
  2. TEGISON [Suspect]
     Dosage: TRPL
     Route: 064
     Dates: start: 19950101

REACTIONS (3)
  - HYPOPLASTIC LEFT HEART SYNDROME [None]
  - PREGNANCY OF PARTNER [None]
  - TRANSMISSION OF DRUG VIA SEMEN [None]
